FAERS Safety Report 8790887 (Version 2)
Quarter: 2012Q4

REPORT INFORMATION
  Report Type: Spontaneous
  Country: IT (occurrence: None)
  Receive Date: 20120910
  Receipt Date: 20120926
  Transmission Date: 20130627
  Serious: Yes (Hospitalization, Disabling)
  Sender: FDA-Public Use
  Company Number: 2012-3990

PATIENT
  Age: 36 Year
  Sex: Female

DRUGS (5)
  1. DYSPORT [Suspect]
     Indication: HYPERHIDROSIS
     Dosage: 250 Units (250 Units, 1 in 1 Cycle(s)),Subcutaneous
     Route: 058
     Dates: start: 20080131, end: 20080131
  2. DYSPORT [Suspect]
     Indication: HYPERHIDROSIS
     Dosage: 250 Units (250 Units, 1 in 1 Cycle(s)),Subcutaneous
     Route: 058
     Dates: start: 20080418, end: 20080418
  3. DYSPORT [Suspect]
     Indication: HYPERHIDROSIS
     Dosage: 250 Units (250 Units, 1 in 1 Cycle(s)),Subcutaneous
     Route: 058
     Dates: start: 200903, end: 200903
  4. DYSPORT [Suspect]
     Indication: HYPERHIDROSIS
     Dosage: 250 Units (250 Units, 1 in 1 Cycle(s)),Subcutaneous
     Route: 058
     Dates: start: 200908, end: 200908
  5. DYSPORT [Suspect]
     Indication: HYPERHIDROSIS
     Dosage: 250 Units (250 Units, 1 in 1 Cycle(s)),Subcutaneous
     Route: 058
     Dates: start: 200912, end: 200912

REACTIONS (19)
  - Helicobacter gastritis [None]
  - Weight decreased [None]
  - Diarrhoea [None]
  - Tension headache [None]
  - Toxicity to various agents [None]
  - Hypotonia [None]
  - Muscle hypertrophy [None]
  - Myalgia [None]
  - Eye movement disorder [None]
  - Dyspepsia [None]
  - Muscle spasms [None]
  - Diarrhoea [None]
  - Hypokalaemia [None]
  - Amenorrhoea [None]
  - Hyperhidrosis [None]
  - Iron deficiency anaemia [None]
  - Migraine [None]
  - Muscle tightness [None]
  - Binocular eye movement disorder [None]
